FAERS Safety Report 4791963-3 (Version None)
Quarter: 2005Q4

REPORT INFORMATION
  Report Type: 
  Country: None (occurrence: None)
  Receive Date: 20051005
  Receipt Date: 20050916
  Transmission Date: 20060501
  Serious: Yes (Other)
  Sender: FDA-Public Use
  Company Number: FR_050907149

PATIENT
  Age: 83 Year
  Sex: Female

DRUGS (6)
  1. FORTEO [Suspect]
     Indication: OSTEOPOROSIS
     Dosage: 20 UG DAY
     Dates: start: 20041230
  2. PLAVIX [Concomitant]
  3. PREDNISONE [Concomitant]
  4. IDEOS [Concomitant]
  5. XANAX [Concomitant]
  6. OMEPRAZOLE [Concomitant]

REACTIONS (4)
  - ABDOMINAL PAIN UPPER [None]
  - HEPATIC PAIN [None]
  - MELAENA [None]
  - NAUSEA [None]
